FAERS Safety Report 4479368-6 (Version None)
Quarter: 2004Q4

REPORT INFORMATION
  Report Type: 
  Country: None (occurrence: None)
  Receive Date: 20041015
  Receipt Date: 20040921
  Transmission Date: 20050328
  Serious: Yes (Other)
  Sender: FDA-Public Use
  Company Number: 2002106777US

PATIENT
  Age: 37 Year
  Sex: Female
  Weight: 70 kg

DRUGS (6)
  1. DEPO-PROVERA [Suspect]
     Indication: PELVIC PAIN
     Dosage: SEE IMAGE
     Route: 030
     Dates: start: 19911001, end: 19911001
  2. DEPO-PROVERA [Suspect]
     Indication: PELVIC PAIN
     Dosage: SEE IMAGE
     Route: 030
     Dates: start: 20011201, end: 20011201
  3. METHADONE HCL [Concomitant]
  4. ATENOLOL [Concomitant]
  5. TYLENOL W/ CODEINE NO. 3 [Concomitant]
  6. LORTAB [Concomitant]

REACTIONS (17)
  - ABDOMINAL DISTENSION [None]
  - ALOPECIA [None]
  - AMENORRHOEA [None]
  - ANKLE FRACTURE [None]
  - CUSHINGOID [None]
  - DEAFNESS [None]
  - FOOT FRACTURE [None]
  - FRACTURE [None]
  - HIRSUTISM [None]
  - HYPERTRICHOSIS [None]
  - MENOPAUSE [None]
  - OSTEOPOROSIS [None]
  - OVARIAN DISORDER [None]
  - SWELLING [None]
  - TEETH BRITTLE [None]
  - TOOTH FRACTURE [None]
  - WEIGHT INCREASED [None]
